FAERS Safety Report 8372600-8 (Version None)
Quarter: 2012Q2

REPORT INFORMATION
  Report Type: 
  Country: None (occurrence: None)
  Receive Date: 20120521
  Receipt Date: 20120516
  Transmission Date: 20120825
  Serious: Yes (Life-Threatening, Hospitalization, Other)
  Sender: FDA-Public Use
  Company Number: PHFR2012GB001481

PATIENT
  Sex: Male

DRUGS (7)
  1. CLOZAPINE [Suspect]
     Dates: end: 20090624
  2. RISPERIDONE [Concomitant]
     Dosage: UNK UKN, UNK
  3. QUETIAPINE [Concomitant]
  4. CLOPIXOL [Concomitant]
  5. LEVOTHYROXINE SODIUM [Concomitant]
     Dosage: 10 UG, DAILY
  6. HYDROCORTISONE [Concomitant]
     Dosage: 20 MG, DAILY
  7. VALPROATE SODIUM [Concomitant]
     Indication: EPILEPSY
     Dosage: 500 MG, BD

REACTIONS (6)
  - MENTAL IMPAIRMENT [None]
  - AGGRESSION [None]
  - OVERDOSE [None]
  - NEUTROPENIA [None]
  - SUICIDE ATTEMPT [None]
  - FULL BLOOD COUNT ABNORMAL [None]
